FAERS Safety Report 7480058-6 (Version None)
Quarter: 2011Q2

REPORT INFORMATION
  Report Type: 
  Country: None (occurrence: None)
  Receive Date: 20110516
  Receipt Date: 20110505
  Transmission Date: 20111010
  Serious: No
  Sender: FDA-Public Use
  Company Number: US-BIOGENIDEC-2011BI007749

PATIENT
  Age: 37 Year
  Sex: Male

DRUGS (2)
  1. AVONEX [Concomitant]
     Indication: MULTIPLE SCLEROSIS
     Route: 030
     Dates: start: 20090828
  2. TYSABRI [Suspect]
     Indication: MULTIPLE SCLEROSIS
     Route: 042
     Dates: start: 20110120

REACTIONS (10)
  - BURNING SENSATION [None]
  - CHONDROCALCINOSIS PYROPHOSPHATE [None]
  - PAIN IN EXTREMITY [None]
  - CHROMATURIA [None]
  - URINE FLOW DECREASED [None]
  - INSOMNIA [None]
  - ERYTHEMA [None]
  - URINE ODOUR ABNORMAL [None]
  - OEDEMA PERIPHERAL [None]
  - ARTHRALGIA [None]
